FAERS Safety Report 16290620 (Version 2)
Quarter: 2019Q2

REPORT INFORMATION
  Report Type: Spontaneous
  Country: US (occurrence: US)
  Receive Date: 20190509
  Receipt Date: 20190627
  Transmission Date: 20190711
  Serious: Yes (Death)
  Sender: FDA-Public Use
  Company Number: US-PFIZER INC-2019196631

PATIENT
  Age: 73 Year
  Sex: Female
  Weight: 83.91 kg

DRUGS (1)
  1. RAPAMUNE [Suspect]
     Active Substance: SIROLIMUS
     Indication: LUNG NEOPLASM MALIGNANT
     Dosage: 1 DF, 2X/DAY (1 PILL TWICE DAILY BY MOUTH)
     Route: 048
     Dates: start: 201810

REACTIONS (3)
  - Product use in unapproved indication [Unknown]
  - Off label use [Unknown]
  - Lung neoplasm malignant [Fatal]

NARRATIVE: CASE EVENT DATE: 201810
